FAERS Safety Report 5801933-1 (Version None)
Quarter: 2008Q3

REPORT INFORMATION
  Report Type: 
  Country: None (occurrence: None)
  Receive Date: 20080702
  Receipt Date: 20080107
  Transmission Date: 20090109
  Serious: Yes (Hospitalization)
  Sender: FDA-Public Use
  Company Number: SPV1-2008-01378

PATIENT
  Sex: Male

DRUGS (2)
  1. ELAPRASE [Suspect]
     Indication: MUCOPOLYSACCHARIDOSIS II
     Dosage: 0.5 MG/KG, 1X/WEEK, IV DRIP
     Route: 042
     Dates: start: 20060101
  2. TORADOL [Suspect]
     Indication: PAIN

REACTIONS (5)
  - AGITATION [None]
  - LETHARGY [None]
  - PAIN [None]
  - SOMNOLENCE [None]
  - THERAPEUTIC RESPONSE DECREASED [None]
